FAERS Safety Report 5889577-7 (Version None)
Quarter: 2008Q3

REPORT INFORMATION
  Report Type: 
  Country: None (occurrence: None)
  Receive Date: 20080919
  Receipt Date: 20080912
  Transmission Date: 20090109
  Serious: Yes (Other)
  Sender: FDA-Public Use
  Company Number: A0748249A

PATIENT
  Age: 71 Year
  Sex: Male
  Weight: 131.8 kg

DRUGS (18)
  1. AVANDIA [Suspect]
     Indication: DIABETES MELLITUS
     Dosage: 8MG PER DAY
     Route: 048
     Dates: start: 19980101, end: 20060321
  2. GLUCOTROL [Concomitant]
  3. GLUCOPHAGE [Concomitant]
  4. PAXIL [Concomitant]
  5. METFORMIN HCL [Concomitant]
  6. ZOCOR [Concomitant]
  7. TRICOR [Concomitant]
  8. LISINOPRIL [Concomitant]
  9. ZOLOFT [Concomitant]
  10. NORVASC [Concomitant]
  11. FLOMAX [Concomitant]
  12. TYLENOL (CAPLET) [Concomitant]
  13. PLAVIX [Concomitant]
  14. FELDENE [Concomitant]
  15. FLEXERIL [Concomitant]
  16. VOLTAREN [Concomitant]
  17. ZAROXOLYN [Concomitant]
  18. ZETIA [Concomitant]

REACTIONS (2)
  - ARTERIAL OCCLUSIVE DISEASE [None]
  - CARDIAC FAILURE CONGESTIVE [None]
